FAERS Safety Report 12474238 (Version 2)
Quarter: 2016Q3

REPORT INFORMATION
  Report Type: Report from Study
  Country: US (occurrence: US)
  Receive Date: 20160617
  Receipt Date: 20160727
  Transmission Date: 20161109
  Serious: Yes (Hospitalization, Other)
  Sender: FDA-Public Use
  Company Number: US-BIOGEN-2007BI004331

PATIENT
  Age: 49 Year
  Sex: Female
  Weight: 67.19 kg

DRUGS (3)
  1. AVONEX [Suspect]
     Active Substance: INTERFERON BETA-1A
     Route: 030
     Dates: start: 2014, end: 201604
  2. AVONEX [Suspect]
     Active Substance: INTERFERON BETA-1A
     Route: 030
     Dates: start: 2014, end: 2014
  3. AVONEX [Suspect]
     Active Substance: INTERFERON BETA-1A
     Indication: MULTIPLE SCLEROSIS
     Route: 030
     Dates: start: 19981202, end: 2014

REACTIONS (8)
  - Dysstasia [Unknown]
  - Musculoskeletal disorder [Unknown]
  - Balance disorder [Unknown]
  - Sepsis [Recovered/Resolved]
  - Gait disturbance [Not Recovered/Not Resolved]
  - Constipation [Unknown]
  - Multiple sclerosis relapse [Recovered/Resolved]
  - Progressive multiple sclerosis [Unknown]

NARRATIVE: CASE EVENT DATE: 1999
